FAERS Safety Report 8183297-4 (Version None)
Quarter: 2012Q1

REPORT INFORMATION
  Report Type: 
  Country: None (occurrence: None)
  Receive Date: 20120305
  Receipt Date: 20120229
  Transmission Date: 20120608
  Serious: Yes (Hospitalization, Other)
  Sender: FDA-Public Use
  Company Number: US-PFIZER INC-2011199196

PATIENT
  Sex: Female

DRUGS (10)
  1. EFFEXOR [Concomitant]
     Indication: POST-TRAUMATIC STRESS DISORDER
     Dosage: UNK
     Dates: start: 20030101, end: 20090101
  2. XANAX [Concomitant]
     Indication: ANXIETY
  3. PREDNISONE [Concomitant]
     Dosage: UNK
     Dates: start: 20070101, end: 20090101
  4. DICLOFENAC SODIUM [Concomitant]
     Indication: PAIN
     Dosage: UNK
     Dates: start: 20040101, end: 20100101
  5. ACETAMINOPHEN AND HYDROCODONE BITARTRATE [Concomitant]
     Indication: PAIN
     Dosage: UNK
     Dates: start: 20070101, end: 20090101
  6. NITROSTAT [Concomitant]
     Indication: CHEST PAIN
     Dosage: UNK
     Dates: start: 20030101, end: 20110101
  7. XANAX [Concomitant]
     Indication: POST-TRAUMATIC STRESS DISORDER
     Dosage: UNK
     Dates: start: 20030101, end: 20110101
  8. CHANTIX [Suspect]
     Indication: SMOKING CESSATION THERAPY
     Dosage: 1 MG, UNK
     Route: 048
     Dates: start: 20080101, end: 20080301
  9. EFFEXOR [Concomitant]
     Indication: ANXIETY
  10. PROMETHAZINE [Concomitant]
     Indication: NAUSEA
     Dosage: UNK
     Dates: start: 20070101, end: 20110101

REACTIONS (8)
  - SUICIDE ATTEMPT [None]
  - DEPRESSION [None]
  - ANXIETY [None]
  - CONVULSION [None]
  - INSOMNIA [None]
  - CONFUSIONAL STATE [None]
  - VERTIGO [None]
  - AMNESIA [None]
